FAERS Safety Report 21280261 (Version 1)
Quarter: 2022Q3

REPORT INFORMATION
  Report Type: Spontaneous
  Country: US (occurrence: US)
  Receive Date: 20220901
  Receipt Date: 20220901
  Transmission Date: 20221026
  Serious: Yes (Hospitalization)
  Sender: FDA-Public Use
  Company Number: US-ALNYLAM PHARMACEUTICALS, INC.-ALN-2022-003100

PATIENT

DRUGS (1)
  1. ONPATTRO [Suspect]
     Active Substance: PATISIRAN SODIUM
     Indication: Hereditary neuropathic amyloidosis
     Dosage: 16 MILLIGRAM, Q3W
     Route: 042
     Dates: start: 20220810

REACTIONS (3)
  - Hospitalisation [Not Recovered/Not Resolved]
  - Central venous catheterisation [Unknown]
  - Procedural complication [Unknown]
